FAERS Safety Report 7965065-9 (Version None)
Quarter: 2011Q4

REPORT INFORMATION
  Report Type: 
  Country: None (occurrence: None)
  Receive Date: 20111208
  Receipt Date: 20111201
  Transmission Date: 20120403
  Serious: Yes (Other)
  Sender: FDA-Public Use
  Company Number: FR-BAYER-2011-116120

PATIENT
  Age: 59 Year
  Sex: Male

DRUGS (3)
  1. OMEPRAZOLE [Concomitant]
     Dosage: UNK
     Dates: start: 20110712, end: 20110719
  2. PREDNISONE TAB [Concomitant]
     Indication: DEVICE RELATED INFECTION
     Dosage: UNK
     Route: 048
     Dates: start: 20110712, end: 20110717
  3. MOXIFLOXACIN HCL [Suspect]
     Indication: DEVICE RELATED INFECTION
     Dosage: UNK
     Route: 048
     Dates: start: 20110712, end: 20110719

REACTIONS (3)
  - IRIS ATROPHY [None]
  - UVEITIS [None]
  - OCULAR HYPERTENSION [None]
